FAERS Safety Report 10900357 (Version 2)
Quarter: 2015Q2

REPORT INFORMATION
  Report Type: Spontaneous
  Country: US (occurrence: US)
  Receive Date: 20150310
  Receipt Date: 20150415
  Transmission Date: 20150821
  Serious: No
  Sender: FDA-Public Use
  Company Number: US-BIOGENIDEC-2015BI023334

PATIENT
  Age: 58 Year
  Sex: Female

DRUGS (5)
  1. DIAZEPAM. [Concomitant]
     Active Substance: DIAZEPAM
  2. NEXIUM [Concomitant]
     Active Substance: ESOMEPRAZOLE MAGNESIUM
  3. ZANTAC [Concomitant]
     Active Substance: RANITIDINE HYDROCHLORIDE
  4. TECFIDERA [Suspect]
     Active Substance: DIMETHYL FUMARATE
     Indication: MULTIPLE SCLEROSIS
     Route: 048
  5. VALIUM [Concomitant]
     Active Substance: DIAZEPAM

REACTIONS (3)
  - Constipation [Unknown]
  - Rash [Unknown]
  - Flushing [Not Recovered/Not Resolved]
